FAERS Safety Report 20538263 (Version 1)
Quarter: 2022Q1

REPORT INFORMATION
  Report Type: Spontaneous
  Country: US (occurrence: US)
  Receive Date: 20220302
  Receipt Date: 20220302
  Transmission Date: 20220423
  Serious: Yes (Hospitalization, Other)
  Sender: FDA-Public Use
  Company Number: US-TORRENT-00011753

PATIENT
  Age: 34 Year
  Sex: Female

DRUGS (2)
  1. TIANEPTINE [Interacting]
     Active Substance: TIANEPTINE
     Indication: Insomnia
     Dosage: UNKNOWN
  2. VENLAFAXINE [Interacting]
     Active Substance: VENLAFAXINE HYDROCHLORIDE
     Indication: Depression
     Dosage: UNKNOWN

REACTIONS (5)
  - Serotonin syndrome [Recovered/Resolved]
  - Drug interaction [Unknown]
  - Overdose [Unknown]
  - Metabolic acidosis [Recovered/Resolved]
  - Status epilepticus [Recovered/Resolved]
